FAERS Safety Report 22143073 (Version 5)
Quarter: 2023Q2

REPORT INFORMATION
  Report Type: Spontaneous
  Country: US (occurrence: US)
  Receive Date: 20230327
  Receipt Date: 20230522
  Transmission Date: 20230721
  Serious: No
  Sender: FDA-Public Use
  Company Number: US-PFIZER INC-PV202200094424

PATIENT
  Age: 14 Year
  Sex: Female
  Weight: 44.444 kg

DRUGS (2)
  1. GENOTROPIN [Suspect]
     Active Substance: SOMATROPIN
     Dosage: 0.8 MG, DAILY
  2. GENOTROPIN [Suspect]
     Active Substance: SOMATROPIN
     Dosage: 2.4-2.6 UNITS, DAILY
     Route: 058

REACTIONS (3)
  - Drug delivery system issue [Unknown]
  - Poor quality device used [Unknown]
  - Drug dose omission by device [Unknown]
